FAERS Safety Report 12522124 (Version 2)
Quarter: 2016Q3

REPORT INFORMATION
  Report Type: Report from Study
  Country: US (occurrence: US)
  Receive Date: 20160701
  Receipt Date: 20160818
  Transmission Date: 20161109
  Serious: Yes (Hospitalization)
  Sender: FDA-Public Use
  Company Number: US-009507513-1606USA010658

PATIENT
  Age: 49 Year
  Sex: Male
  Weight: 62.9 kg

DRUGS (5)
  1. PEMBROLIZUMAB. [Suspect]
     Active Substance: PEMBROLIZUMAB
     Indication: TONSIL CANCER
     Dosage: 200 MG, ONCE
     Route: 042
     Dates: start: 20160608, end: 20160608
  2. MORPHINE [Concomitant]
     Active Substance: MORPHINE
     Dosage: 45 G, BID
     Dates: start: 20160517
  3. HYDROMORPHONE [Concomitant]
     Active Substance: HYDROMORPHONE
     Indication: PAIN
     Dosage: 2 MG, Q4H
     Dates: start: 20160606
  4. ZOFRAN [Concomitant]
     Active Substance: ONDANSETRON HYDROCHLORIDE
     Dosage: 4 MG, Q6H
     Dates: start: 20160510
  5. CLINDAMYCIN [Concomitant]
     Active Substance: CLINDAMYCIN\CLINDAMYCIN PHOSPHATE
     Indication: FRACTURE
     Dosage: UNK
     Dates: start: 20160520

REACTIONS (3)
  - Pericardial effusion [Unknown]
  - Fatigue [Unknown]
  - Cough [Unknown]

NARRATIVE: CASE EVENT DATE: 20160620
